FAERS Safety Report 23626757 (Version 1)
Quarter: 2024Q1

REPORT INFORMATION
  Report Type: Spontaneous
  Country: US (occurrence: US)
  Receive Date: 20240313
  Receipt Date: 20240313
  Transmission Date: 20240410
  Serious: No
  Sender: FDA-Public Use
  Company Number: US-PFIZER INC-PV202400033831

PATIENT
  Age: 47 Year
  Sex: Female

DRUGS (1)
  1. XELJANZ XR [Suspect]
     Active Substance: TOFACITINIB CITRATE
     Indication: Arthritis
     Dosage: UNK

REACTIONS (11)
  - Pruritus [Unknown]
  - Pain [Unknown]
  - Rash erythematous [Unknown]
  - Arthralgia [Unknown]
  - Paraesthesia [Unknown]
  - Abdominal pain upper [Unknown]
  - Hyperchlorhydria [Unknown]
  - Therapeutic product effect incomplete [Unknown]
  - Gastroenteritis viral [Unknown]
  - COVID-19 [Unknown]
  - Product dose omission in error [Unknown]
